FAERS Safety Report 7747174-2 (Version None)
Quarter: 2011Q3

REPORT INFORMATION
  Report Type: 
  Country: None (occurrence: None)
  Receive Date: 20110913
  Receipt Date: 20110907
  Transmission Date: 20111222
  Serious: Yes (Other)
  Sender: FDA-Public Use
  Company Number: DE-PFIZER INC-2011210147

PATIENT

DRUGS (2)
  1. SEROQUEL [Suspect]
     Indication: CONVULSION
     Dosage: UNK
  2. LYRICA [Suspect]
     Indication: CONVULSION
     Dosage: UNK

REACTIONS (1)
  - HYPONATRAEMIA [None]
